FAERS Safety Report 15894666 (Version 1)
Quarter: 2019Q1

REPORT INFORMATION
  Report Type: Spontaneous
  Country: US (occurrence: US)
  Receive Date: 20190131
  Receipt Date: 20190131
  Transmission Date: 20190417
  Serious: No
  Sender: FDA-Public Use
  Company Number: US-PFIZER INC-2017419853

PATIENT
  Age: 6 Year
  Sex: Female

DRUGS (1)
  1. GENOTROPIN MQ [Suspect]
     Active Substance: SOMATROPIN
     Indication: GROWTH FAILURE
     Dosage: 1.6 MG, DAILY
     Dates: start: 20120420

REACTIONS (18)
  - White blood cell count decreased [Unknown]
  - Alanine aminotransferase increased [Unknown]
  - Blood follicle stimulating hormone increased [Unknown]
  - Blood 25-hydroxycholecalciferol increased [Unknown]
  - Product use in unapproved indication [Unknown]
  - Haemoglobin decreased [Unknown]
  - Red cell distribution width increased [Unknown]
  - Blood alkaline phosphatase decreased [Unknown]
  - Serum ferritin increased [Unknown]
  - Neutrophil count decreased [Unknown]
  - Protein total decreased [Unknown]
  - Blood magnesium decreased [Unknown]
  - Red blood cell count decreased [Unknown]
  - Blood parathyroid hormone increased [Unknown]
  - Blood 25-hydroxycholecalciferol decreased [Unknown]
  - Blood calcium decreased [Unknown]
  - Haematocrit decreased [Unknown]
  - Blood urea increased [Unknown]
